FAERS Safety Report 15491340 (Version 1)
Quarter: 2018Q4

REPORT INFORMATION
  Report Type: Report from Study
  Country: KR (occurrence: KR)
  Receive Date: 20181012
  Receipt Date: 20181012
  Transmission Date: 20190205
  Serious: Yes (Hospitalization)
  Sender: FDA-Public Use
  Company Number: KR-CELLTRION INC.-2018KR022935

PATIENT

DRUGS (11)
  1. REMSIMA [Suspect]
     Active Substance: INFLIXIMAB
     Dosage: UNK
     Route: 042
  2. PENTASA [Concomitant]
     Active Substance: MESALAMINE
     Dosage: 1 BT, ENEMA
     Route: 054
     Dates: start: 20170125
  3. GASOCOL [Concomitant]
     Indication: CHRONIC GASTRITIS
     Dosage: 1 PACK, QD
     Route: 048
     Dates: start: 20170307
  4. PENTASA [Concomitant]
     Active Substance: MESALAMINE
     Dosage: 1 UNK, QD
     Route: 048
     Dates: start: 20170125
  5. CURAN [Concomitant]
     Active Substance: RANITIDINE HYDROCHLORIDE
     Indication: CHRONIC GASTRITIS
     Dosage: 1 DF, BID
     Route: 048
     Dates: start: 20170307
  6. REMSIMA [Suspect]
     Active Substance: INFLIXIMAB
     Dosage: UNK
     Route: 042
  7. PYRIDOXINE [Concomitant]
     Active Substance: PYRIDOXINE
     Indication: LATENT TUBERCULOSIS
     Dosage: 50 MG, QD
     Route: 048
     Dates: start: 20170225, end: 20171217
  8. REMSIMA [Suspect]
     Active Substance: INFLIXIMAB
     Indication: COLITIS ULCERATIVE
     Dosage: 330 MG, EVERY 8 WEEKS
     Route: 042
     Dates: start: 20170327, end: 20170327
  9. PENTASA [Concomitant]
     Active Substance: MESALAMINE
     Indication: COLITIS ULCERATIVE
     Dosage: 2 UNK, QD
     Route: 048
     Dates: start: 20170125
  10. YUHANZID [Concomitant]
     Active Substance: ISONIAZID
     Indication: LATENT TUBERCULOSIS
     Dosage: 300 MG, QD
     Route: 048
     Dates: start: 20170225, end: 20171217
  11. LANSTON [Concomitant]
     Active Substance: LANSOPRAZOLE
     Indication: GASTROOESOPHAGEAL REFLUX DISEASE
     Dosage: 1 UNK, QD
     Route: 048
     Dates: start: 20170215

REACTIONS (2)
  - Dermatitis [Recovered/Resolved]
  - Oedema [Recovered/Resolved]

NARRATIVE: CASE EVENT DATE: 20170529
